FAERS Safety Report 21029709 (Version 11)
Quarter: 2023Q4

REPORT INFORMATION
  Report Type: Spontaneous
  Country: JP (occurrence: JP)
  Receive Date: 20220630
  Receipt Date: 20231218
  Transmission Date: 20240110
  Serious: Yes (Death, Other)
  Sender: FDA-Public Use
  Company Number: JP-BRISTOL-MYERS SQUIBB COMPANY-2022-065422

PATIENT
  Age: 73 Year
  Sex: Female

DRUGS (4)
  1. YERVOY [Suspect]
     Active Substance: IPILIMUMAB
     Indication: Non-small cell lung cancer
     Route: 041
  2. OPDIVO [Suspect]
     Active Substance: NIVOLUMAB
     Indication: Non-small cell lung cancer
     Route: 041
  3. CARBOPLATIN [Concomitant]
     Active Substance: CARBOPLATIN
     Indication: Non-small cell lung cancer
  4. PACLITAXEL [Concomitant]
     Active Substance: PACLITAXEL
     Indication: Non-small cell lung cancer

REACTIONS (13)
  - Cytokine storm [Fatal]
  - Neutropenia [Unknown]
  - Hepatic function abnormal [Unknown]
  - Haemophagocytic lymphohistiocytosis [Fatal]
  - Acute respiratory distress syndrome [Unknown]
  - Rash [Unknown]
  - Pyrexia [Unknown]
  - Staphylococcus test positive [Unknown]
  - Disseminated intravascular coagulation [Unknown]
  - Pneumonitis [Unknown]
  - Renal disorder [Unknown]
  - Shock [Unknown]
  - Urinary tract infection [Unknown]
